FAERS Safety Report 7604078-3 (Version None)
Quarter: 2011Q3

REPORT INFORMATION
  Report Type: 
  Country: None (occurrence: None)
  Receive Date: 20110712
  Receipt Date: 20110630
  Transmission Date: 20111222
  Serious: Yes (Hospitalization)
  Sender: FDA-Public Use
  Company Number: US-BRISTOL-MYERS SQUIBB COMPANY-15863624

PATIENT
  Sex: Male

DRUGS (1)
  1. YERVOY [Suspect]
     Dates: start: 20110617

REACTIONS (2)
  - PULMONARY HAEMORRHAGE [None]
  - HAEMOPTYSIS [None]
